FAERS Safety Report 9267592 (Version 1)
Quarter: 2013Q2

REPORT INFORMATION
  Report Type: Spontaneous
  Country: US (occurrence: US)
  Receive Date: 20130502
  Receipt Date: 20130502
  Transmission Date: 20140414
  Serious: Yes (Hospitalization)
  Sender: FDA-Public Use
  Company Number: US-BAYER-2013-053284

PATIENT
  Age: 34 Year
  Sex: Female

DRUGS (6)
  1. BEYAZ [Suspect]
     Indication: MENORRHAGIA
     Dosage: UNK
     Dates: start: 20120102, end: 20120705
  2. BEYAZ [Suspect]
     Indication: CONTRACEPTION
  3. YAZ [Suspect]
  4. LISINOPRIL [Concomitant]
  5. NORVASC [Concomitant]
  6. VICODIN [Concomitant]

REACTIONS (2)
  - Thrombophlebitis superficial [None]
  - Pain in extremity [None]
